FAERS Safety Report 20541931 (Version 1)
Quarter: 2022Q1

REPORT INFORMATION
  Report Type: Spontaneous
  Country: US (occurrence: US)
  Receive Date: 20220302
  Receipt Date: 20220302
  Transmission Date: 20220423
  Serious: Yes (Other)
  Sender: FDA-Public Use
  Company Number: US-BAYER-2021A264613

PATIENT
  Age: 90 Year
  Sex: Male

DRUGS (1)
  1. RIVAROXABAN [Suspect]
     Active Substance: RIVAROXABAN
     Indication: Atrial fibrillation
     Route: 048

REACTIONS (3)
  - Large intestinal haemorrhage [Unknown]
  - Dieulafoy^s vascular malformation [Unknown]
  - Diverticulum intestinal haemorrhagic [Unknown]
